FAERS Safety Report 12935467 (Version 1)
Quarter: 2016Q4

REPORT INFORMATION
  Report Type: Spontaneous
  Country: US (occurrence: US)
  Receive Date: 20161114
  Receipt Date: 20161114
  Transmission Date: 20170207
  Serious: No
  Sender: FDA-Public Use
  Company Number: US-JAZZ-2016-US-018747

PATIENT
  Sex: Female

DRUGS (13)
  1. ALBUTEROL SULFATE. [Concomitant]
     Active Substance: ALBUTEROL SULFATE
  2. IBUPROFEN. [Concomitant]
     Active Substance: IBUPROFEN
  3. XYREM [Suspect]
     Active Substance: SODIUM OXYBATE
     Indication: CATAPLEXY
     Dosage: 2.25 G, BID
     Route: 048
     Dates: start: 201404, end: 201404
  4. BENICAR [Concomitant]
     Active Substance: OLMESARTAN MEDOXOMIL
  5. MIDOL                              /00002701/ [Concomitant]
  6. RITALIN [Concomitant]
     Active Substance: METHYLPHENIDATE HYDROCHLORIDE
  7. XYREM [Suspect]
     Active Substance: SODIUM OXYBATE
     Indication: NARCOLEPSY
     Dosage: 2.25 G, BID
     Route: 048
     Dates: start: 200908, end: 2009
  8. XYREM [Suspect]
     Active Substance: SODIUM OXYBATE
     Dosage: 4.5 G, BID
     Route: 048
     Dates: start: 201406
  9. HYDROCHLOROTHIAZIDE. [Concomitant]
     Active Substance: HYDROCHLOROTHIAZIDE
  10. XYREM [Suspect]
     Active Substance: SODIUM OXYBATE
     Dosage: DOSE ADJUSTMENTS
     Route: 048
     Dates: start: 201404, end: 201406
  11. PROVIGIL [Concomitant]
     Active Substance: MODAFINIL
  12. VENLAFAXINE HCL [Concomitant]
     Active Substance: VENLAFAXINE HYDROCHLORIDE
  13. PROZAC [Concomitant]
     Active Substance: FLUOXETINE HYDROCHLORIDE

REACTIONS (1)
  - Unevaluable event [Unknown]
